FAERS Safety Report 24337136 (Version 4)
Quarter: 2025Q1

REPORT INFORMATION
  Report Type: Report from Study
  Country: PT (occurrence: PT)
  Receive Date: 20240919
  Receipt Date: 20250214
  Transmission Date: 20250408
  Serious: Yes (Death)
  Sender: AUROBINDO
  Company Number: PT-PFIZER INC-202400248577

PATIENT

DRUGS (1)
  1. ACYCLOVIR [Suspect]
     Active Substance: ACYCLOVIR
     Indication: Herpes zoster meningoencephalitis
     Route: 065

REACTIONS (2)
  - Drug ineffective [Fatal]
  - No adverse event [Unknown]
